FAERS Safety Report 5018072-2 (Version None)
Quarter: 2006Q2

REPORT INFORMATION
  Report Type: 
  Country: None (occurrence: None)
  Receive Date: 20060530
  Receipt Date: 20060515
  Transmission Date: 20061013
  Serious: Yes (Other)
  Sender: FDA-Public Use
  Company Number: 2006027910

PATIENT
  Age: 44 Year
  Sex: Male
  Weight: 87.0906 kg

DRUGS (4)
  1. VIAGRA [Suspect]
     Indication: ERECTILE DYSFUNCTION
     Dosage: 50MG (50 MG, 1 AS NECESSARY), ORAL
     Route: 048
     Dates: start: 20020901
  2. ZOCOR [Concomitant]
  3. ZANTAC [Concomitant]
  4. ADDERALL 10 [Concomitant]

REACTIONS (20)
  - BLOOD URINE PRESENT [None]
  - CELLULITIS [None]
  - CONTUSION [None]
  - CSF TEST ABNORMAL [None]
  - DIPLOPIA [None]
  - EXCORIATION [None]
  - EYE PAIN [None]
  - HEPATIC STEATOSIS [None]
  - HYPOAESTHESIA [None]
  - LACRIMATION DECREASED [None]
  - MYOPIA [None]
  - ONYCHOMYCOSIS [None]
  - OPTIC ISCHAEMIC NEUROPATHY [None]
  - OPTIC NEURITIS [None]
  - PARAESTHESIA [None]
  - PUPILS UNEQUAL [None]
  - ROAD TRAFFIC ACCIDENT [None]
  - SLUGGISHNESS [None]
  - THYROID NEOPLASM [None]
  - VISION BLURRED [None]
